FAERS Safety Report 16802277 (Version 1)
Quarter: 2019Q3

REPORT INFORMATION
  Report Type: Spontaneous
  Country: IN (occurrence: IN)
  Receive Date: 20190912
  Receipt Date: 20190912
  Transmission Date: 20191005
  Serious: Yes (Other)
  Sender: FDA-Public Use
  Company Number: PHHY2019IN204200

PATIENT
  Age: 32 Year
  Sex: Male

DRUGS (10)
  1. ITRACONAZOLE. [Suspect]
     Active Substance: ITRACONAZOLE
     Indication: BRONCHOPULMONARY ASPERGILLOSIS ALLERGIC
     Dosage: 400 MG, QD
     Route: 065
  2. PREDNISOLONE. [Suspect]
     Active Substance: PREDNISOLONE
     Indication: BRONCHOPULMONARY ASPERGILLOSIS ALLERGIC
     Dosage: 20 MG, QD
     Route: 065
  3. FORMOTEROL [Suspect]
     Active Substance: FORMOTEROL
     Indication: BRONCHOPULMONARY ASPERGILLOSIS ALLERGIC
     Dosage: 24 UG, QD
     Route: 065
  4. PREDNISOLONE. [Suspect]
     Active Substance: PREDNISOLONE
     Dosage: 60 MG, QD
     Route: 065
  5. VORICONAZOLE. [Suspect]
     Active Substance: VORICONAZOLE
     Indication: BRONCHOPULMONARY ASPERGILLOSIS ALLERGIC
     Dosage: 400 MG, QD
     Route: 065
  6. METHYLPREDNISOLONE. [Suspect]
     Active Substance: METHYLPREDNISOLONE
     Indication: BRONCHOPULMONARY ASPERGILLOSIS ALLERGIC
     Dosage: 1 G, QD
     Route: 042
  7. BUDESONIDE. [Suspect]
     Active Substance: BUDESONIDE
     Indication: BRONCHOPULMONARY ASPERGILLOSIS ALLERGIC
     Dosage: 1600 UG, QD
     Route: 065
  8. THEOPHYLLINE [Suspect]
     Active Substance: THEOPHYLLINE ANHYDROUS
     Indication: BRONCHOPULMONARY ASPERGILLOSIS ALLERGIC
     Dosage: 400 MG, QD
     Route: 065
  9. MONTELUKAST [Suspect]
     Active Substance: MONTELUKAST SODIUM
     Indication: BRONCHOPULMONARY ASPERGILLOSIS ALLERGIC
     Dosage: 10 MG, QD
     Route: 065
  10. PREDNISOLONE. [Suspect]
     Active Substance: PREDNISOLONE
     Dosage: 50 MG, QD
     Route: 065

REACTIONS (10)
  - Decreased appetite [Unknown]
  - Acne [Unknown]
  - Product use in unapproved indication [Unknown]
  - Bronchopulmonary aspergillosis allergic [Unknown]
  - Cushingoid [Unknown]
  - Therapy non-responder [Unknown]
  - Skin striae [Unknown]
  - Fatigue [Unknown]
  - Weight increased [Unknown]
  - Asthma [Unknown]
